FAERS Safety Report 5748166-5 (Version None)
Quarter: 2008Q2

REPORT INFORMATION
  Report Type: 
  Country: None (occurrence: None)
  Receive Date: 20080523
  Receipt Date: 20080430
  Transmission Date: 20081010
  Serious: No
  Sender: FDA-Public Use
  Company Number: US-BOEHRINGER INGELHEIM GMBH, GERMANY-2008-BP-06758BP

PATIENT
  Age: 71 Year
  Sex: Male

DRUGS (11)
  1. FLOMAX [Suspect]
     Indication: DYSURIA
     Route: 048
     Dates: start: 20080408
  2. ZOLADEX [Concomitant]
     Indication: PROSTATE CANCER
  3. IMDUR [Concomitant]
     Indication: CARDIAC DISORDER
  4. LOPRESSOR [Concomitant]
     Indication: HYPERTENSION
  5. ASPIRIN [Concomitant]
  6. LASIX [Concomitant]
  7. SLOW FE [Concomitant]
  8. FOLIC ACID [Concomitant]
  9. VYTORIN [Concomitant]
     Indication: BLOOD CHOLESTEROL
  10. ALLEGRA [Concomitant]
     Indication: HYPERSENSITIVITY
  11. PREVACID [Concomitant]
     Indication: GASTROOESOPHAGEAL REFLUX DISEASE

REACTIONS (2)
  - BLOOD GLUCOSE DECREASED [None]
  - DIZZINESS [None]
